FAERS Safety Report 6057659-5 (Version None)
Quarter: 2009Q1

REPORT INFORMATION
  Report Type: 
  Country: None (occurrence: None)
  Receive Date: 20090129
  Receipt Date: 20090119
  Transmission Date: 20090719
  Serious: Yes (Life-Threatening, Hospitalization)
  Sender: FDA-Public Use
  Company Number: DE-PFIZER INC-2008061616

PATIENT

DRUGS (8)
  1. NEURONTIN [Suspect]
     Indication: NECK PAIN
     Route: 048
     Dates: start: 20080201, end: 20080301
  2. NEURONTIN [Suspect]
     Indication: MUSCULOSKELETAL PAIN
  3. NEURONTIN [Suspect]
     Indication: BACK PAIN
  4. NEURONTIN [Suspect]
     Indication: NEUROPATHY PERIPHERAL
  5. LYOGEN [Suspect]
     Dosage: 2 MG, UNK
     Route: 048
     Dates: start: 19850101
  6. RAMIPRIL [Concomitant]
     Route: 048
  7. OPTALIDON ^NOVARTIS^ [Concomitant]
  8. DOLORMIN [Concomitant]

REACTIONS (5)
  - DIZZINESS [None]
  - GAIT DISTURBANCE [None]
  - HYPOKALAEMIA [None]
  - HYPONATRAEMIA [None]
  - SYNCOPE [None]
